FAERS Safety Report 4659062-9 (Version None)
Quarter: 2005Q2

REPORT INFORMATION
  Report Type: 
  Country: None (occurrence: None)
  Receive Date: 20050510
  Receipt Date: 20050510
  Transmission Date: 20051028
  Serious: No
  Sender: FDA-Public Use
  Company Number: None

PATIENT
  Sex: Female

DRUGS (1)
  1. OVRETTE [Suspect]
     Dosage: PO QD
     Route: 048

REACTIONS (1)
  - WEIGHT INCREASED [None]
